FAERS Safety Report 6505008-8 (Version None)
Quarter: 2009Q4

REPORT INFORMATION
  Report Type: 
  Country: None (occurrence: None)
  Receive Date: 20091218
  Receipt Date: 20091215
  Transmission Date: 20100525
  Serious: Yes (Other)
  Sender: FDA-Public Use
  Company Number: GB-JNJFOC-20080802592

PATIENT
  Age: 4 Week
  Sex: Male

DRUGS (2)
  1. PARACETAMOL [Suspect]
     Route: 054
  2. PARACETAMOL [Suspect]
     Indication: DRUG USE FOR UNKNOWN INDICATION
     Dosage: 2 GRAMS (ALLERGED MAXIMUM DOSE IN 3 DAYS)
     Route: 054

REACTIONS (2)
  - LIVER INJURY [None]
  - OVERDOSE [None]
